FAERS Safety Report 12220047 (Version 1)
Quarter: 2016Q1

REPORT INFORMATION
  Report Type: Spontaneous
  Country: FI (occurrence: FI)
  Receive Date: 20160330
  Receipt Date: 20160330
  Transmission Date: 20160526
  Serious: Yes (Hospitalization)
  Sender: FDA-Public Use
  Company Number: FI-ROCHE-1692658

PATIENT
  Age: 56 Year
  Sex: Female
  Weight: 88 kg

DRUGS (22)
  1. PREDNISON [Concomitant]
     Active Substance: PREDNISONE
     Route: 048
  2. PREDNISON [Concomitant]
     Active Substance: PREDNISONE
     Route: 048
  3. THYROXIN [Concomitant]
     Active Substance: LEVOTHYROXINE
     Route: 048
  4. ROACTEMRA [Suspect]
     Active Substance: TOCILIZUMAB
     Indication: RHEUMATOID ARTHRITIS
     Route: 058
     Dates: start: 201411, end: 20150204
  5. TRAMAL RETARD [Concomitant]
     Active Substance: TRAMADOL
     Indication: PAIN
     Route: 065
     Dates: start: 201502, end: 20150302
  6. LEDERSPAN [Concomitant]
     Active Substance: TRIAMCINOLONE HEXACETONIDE
  7. SOLOMET [Concomitant]
  8. TRAMAL [Concomitant]
     Active Substance: TRAMADOL
     Dosage: AS NEEDED
     Route: 048
  9. OXIKLORIN [Concomitant]
     Active Substance: HYDROXYCHLOROQUINE SULFATE
     Route: 048
     Dates: start: 20150302
  10. KLEXANE [Concomitant]
     Active Substance: ENOXAPARIN
     Route: 065
     Dates: start: 20150202, end: 20150302
  11. DALACIN [Concomitant]
     Active Substance: CLINDAMYCIN\CLINDAMYCIN PHOSPHATE
     Route: 065
     Dates: start: 20150302, end: 20150329
  12. TRAMAL RETARD [Concomitant]
     Active Substance: TRAMADOL
     Route: 048
     Dates: start: 20150302
  13. SOMAC [Concomitant]
     Active Substance: PANTOPRAZOLE SODIUM
     Route: 048
  14. SINGULAIR [Concomitant]
     Active Substance: MONTELUKAST SODIUM
     Indication: RESPIRATORY TRACT INFECTION
     Route: 065
  15. ARCOXIA [Concomitant]
     Active Substance: ETORICOXIB
     Dosage: AS NEEDED, NOT MORE THAN 1 TABLET A DAY
     Route: 048
  16. PREDNISON [Concomitant]
     Active Substance: PREDNISONE
     Route: 048
  17. PANADOL FORTE [Concomitant]
     Active Substance: ACETAMINOPHEN\CAFFEINE
     Indication: PAIN
     Route: 048
  18. ROACTEMRA [Suspect]
     Active Substance: TOCILIZUMAB
     Route: 065
     Dates: start: 2011, end: 2012
  19. NORITREN [Concomitant]
     Active Substance: NORTRIPTYLINE HYDROCHLORIDE
     Route: 048
  20. SERETIDE [Concomitant]
     Active Substance: FLUTICASONE FUROATE\SALMETEROL XINAFOATE
     Dosage: 50/250 MCG
     Route: 055
  21. ARAVA [Concomitant]
     Active Substance: LEFLUNOMIDE
     Route: 048
  22. METHYLPREDNISOLONE. [Concomitant]
     Active Substance: METHYLPREDNISOLONE

REACTIONS (4)
  - Influenza [Recovering/Resolving]
  - Synovial cyst [Unknown]
  - Staphylococcal sepsis [Recovered/Resolved]
  - Arthritis bacterial [Recovered/Resolved]

NARRATIVE: CASE EVENT DATE: 20150131
